FAERS Safety Report 7527877-5 (Version None)
Quarter: 2011Q2

REPORT INFORMATION
  Report Type: 
  Country: None (occurrence: None)
  Receive Date: 20110607
  Receipt Date: 20110526
  Transmission Date: 20111010
  Serious: Yes (Other)
  Sender: FDA-Public Use
  Company Number: RU-ASTELLAS-2011US002660

PATIENT
  Age: 48 Year
  Sex: Female

DRUGS (1)
  1. TARCEVA [Suspect]
     Indication: METASTASES TO CENTRAL NERVOUS SYSTEM
     Dosage: 150 MG, UID/QD
     Route: 048
     Dates: start: 20100413

REACTIONS (1)
  - SKIN DISORDER [None]
